FAERS Safety Report 21112828 (Version 1)
Quarter: 2022Q3

REPORT INFORMATION
  Report Type: Spontaneous
  Country: CN (occurrence: CN)
  Receive Date: 20220721
  Receipt Date: 20220721
  Transmission Date: 20221027
  Serious: Yes (Hospitalization)
  Sender: FDA-Public Use
  Company Number: CN-PFIZER INC-PV202200026207

PATIENT
  Age: 71 Year
  Sex: Female

DRUGS (5)
  1. VFEND [Suspect]
     Active Substance: VORICONAZOLE
     Indication: Bronchopulmonary aspergillosis
     Dosage: 300 MG, 2X/DAY
     Route: 041
     Dates: start: 20220621, end: 20220621
  2. VFEND [Suspect]
     Active Substance: VORICONAZOLE
     Dosage: 200 MG, 2X/DAY
     Route: 041
     Dates: start: 20220622, end: 20220624
  3. OU BO [Concomitant]
     Indication: Antifungal treatment
     Dosage: 5 MG, 3X/DAY
     Dates: start: 20220621, end: 20220624
  4. IPRATROPIUM BROMIDE [Concomitant]
     Active Substance: IPRATROPIUM BROMIDE
     Indication: Bronchopulmonary aspergillosis
     Dosage: 2.5 ML, 3X/DAY
     Route: 055
     Dates: start: 20220622, end: 20220627
  5. NIFEDIPINE [Concomitant]
     Active Substance: NIFEDIPINE
     Indication: Hypertension
     Dosage: 30 MG, 1X/DAY
     Route: 048
     Dates: start: 20220622, end: 20220627

REACTIONS (5)
  - Delirium [Recovered/Resolved]
  - Disorganised speech [Recovered/Resolved]
  - Restlessness [Recovered/Resolved]
  - Neurological symptom [Recovered/Resolved]
  - Drug level increased [Unknown]

NARRATIVE: CASE EVENT DATE: 20220624
